FAERS Safety Report 9519269 (Version 1)
Quarter: 2013Q3

REPORT INFORMATION
  Report Type: Spontaneous
  Country: US (occurrence: None)
  Receive Date: 20130911
  Receipt Date: 20130911
  Transmission Date: 20140515
  Serious: Yes (Other)
  Sender: FDA-Public Use
  Company Number: None

PATIENT
  Age: 21 Year
  Sex: Female
  Weight: 58.88 kg

DRUGS (1)
  1. PERPHENAZINE [Suspect]
     Indication: AFFECTIVE DISORDER
     Dosage: 1 TAB  QD  PO?8/16  -  8/19
     Route: 048

REACTIONS (8)
  - Pruritus [None]
  - Skin disorder [None]
  - Vaginal disorder [None]
  - Pharyngeal disorder [None]
  - Throat irritation [None]
  - Swelling face [None]
  - Swollen tongue [None]
  - Rash [None]
